FAERS Safety Report 6240083-X (Version None)
Quarter: 2009Q2

REPORT INFORMATION
  Report Type: 
  Country: None (occurrence: None)
  Receive Date: 20090618
  Receipt Date: 20090618
  Transmission Date: 20091009
  Serious: No
  Sender: FDA-Public Use
  Company Number: None

PATIENT
  Age: 32 Year
  Sex: Male
  Weight: 99.7913 kg

DRUGS (4)
  1. ZICAM COLD REMEDY NASAL GEL EXTREME CONGESTION FORMULA [Suspect]
     Indication: NASOPHARYNGITIS
     Dosage: ONE SPRAY PER NOSTRIL TWICE DAILY
  2. ZICAM COLD REMEDY NASAL GEL EXTREME CONGESTION FORMULA [Suspect]
     Indication: VIRAL INFECTION
     Dosage: ONE SPRAY PER NOSTRIL TWICE DAILY
  3. ZIACAM COLD REMEDY NASAL [Suspect]
     Indication: NASOPHARYNGITIS
     Dosage: ONE SWAB BOTH NOSTRILS TWICE DAILY
  4. ZIACAM COLD REMEDY NASAL [Suspect]
     Indication: VIRAL INFECTION
     Dosage: ONE SWAB BOTH NOSTRILS TWICE DAILY

REACTIONS (1)
  - ANOSMIA [None]
